FAERS Safety Report 22386484 (Version 8)
Quarter: 2024Q1

REPORT INFORMATION
  Report Type: Spontaneous
  Country: ES (occurrence: ES)
  Receive Date: 20230531
  Receipt Date: 20240117
  Transmission Date: 20240409
  Serious: Yes (Other)
  Sender: FDA-Public Use
  Company Number: ES-AUROBINDO-AUR-APL-2023-036025

PATIENT
  Age: 62 Year
  Sex: Female
  Weight: 90 kg

DRUGS (43)
  1. FUROSEMIDE [Interacting]
     Active Substance: FUROSEMIDE
     Indication: Hypertension
     Dosage: 1.5 MILLIGRAM, ONCE A DAY
     Route: 065
  2. FUROSEMIDE [Interacting]
     Active Substance: FUROSEMIDE
     Dosage: 40 MILLIGRAM (1-0.5-0-0)
     Route: 065
     Dates: start: 2014
  3. FUROSEMIDE [Interacting]
     Active Substance: FUROSEMIDE
     Dosage: 1.5 DOSAGE FORM, ONCE A DAY
     Route: 065
     Dates: start: 2014
  4. GABAPENTIN [Interacting]
     Active Substance: GABAPENTIN
     Indication: Arthralgia
     Dosage: 300 MILLIGRAM
     Route: 065
  5. GABAPENTIN [Interacting]
     Active Substance: GABAPENTIN
     Dosage: 300 MILLIGRAM, 3 TIMES A DAY (1-1-1-0)
     Route: 065
     Dates: start: 2019
  6. MANIDIPINE [Interacting]
     Active Substance: MANIDIPINE
     Indication: Hypertension
     Dosage: 20 MILLIGRAM (0-0-2-0) (2 DOSAGE FORM)
     Route: 065
     Dates: start: 2014
  7. METFORMIN [Interacting]
     Active Substance: METFORMIN HYDROCHLORIDE
     Indication: Diabetes mellitus
     Dosage: 1.05 MILLIGRAM, ONCE A DAY
     Route: 065
  8. METFORMIN [Interacting]
     Active Substance: METFORMIN HYDROCHLORIDE
     Dosage: 1000 MILLIGRAM, ONCE A DAY
     Route: 065
     Dates: start: 2010
  9. METFORMIN [Interacting]
     Active Substance: METFORMIN HYDROCHLORIDE
     Dosage: 1 DOSAGE FORM
     Route: 065
  10. PRAMIPEXOLE [Interacting]
     Active Substance: PRAMIPEXOLE\PRAMIPEXOLE DIHYDROCHLORIDE
     Indication: Tremor
     Dosage: 1.05 MILLIGRAM, ONCE A DAY
     Route: 065
  11. PRAMIPEXOLE [Interacting]
     Active Substance: PRAMIPEXOLE\PRAMIPEXOLE DIHYDROCHLORIDE
     Indication: Parkinsonism
     Dosage: 1 DOSAGE FORM, ONCE A DAY
     Route: 065
  12. QUETIAPINE [Interacting]
     Active Substance: QUETIAPINE
     Indication: Personality disorder
     Dosage: 400 MILLIGRAM, ONCE A DAY (0-0-1-0)
     Route: 065
  13. QUETIAPINE [Interacting]
     Active Substance: QUETIAPINE
     Dosage: 0.5 MILLIGRAM, ONCE A DAY
     Route: 065
  14. VALSARTAN [Interacting]
     Active Substance: VALSARTAN
     Indication: Hypertension
     Dosage: 320 MILLIGRAM, ONCE A DAY (1-0-0-0)
     Route: 065
     Dates: start: 2014
  15. ALPRAZOLAM [Interacting]
     Active Substance: ALPRAZOLAM
     Indication: Personality disorder
     Dosage: 0.5 MILLIGRAM, ONCE A DAY (0-0-1-0)
     Route: 065
  16. KETAZOLAM [Interacting]
     Active Substance: KETAZOLAM
     Indication: Hallucination
     Dosage: 15 MILLIGRAM, ONCE A DAY (0-0-0-1)(1 DOSAGE FORM ONCE A DAY)
     Route: 065
     Dates: start: 2016
  17. KETAZOLAM [Interacting]
     Active Substance: KETAZOLAM
     Indication: Personality disorder
  18. LORMETAZEPAM [Interacting]
     Active Substance: LORMETAZEPAM
     Indication: Personality disorder
     Dosage: 2 MILLIGRAM, ONCE A DAY (0-0-0-1)(1 DOSAGE FORM)
     Route: 065
  19. PIMOZIDE [Interacting]
     Active Substance: PIMOZIDE
     Indication: Personality disorder
     Dosage: 1 MILLIGRAM, ONCE A DAY (0-0-1-0)(1 DOSAGE FORM ONCE A DAY)
     Route: 065
  20. ACETAMINOPHEN [Concomitant]
     Active Substance: ACETAMINOPHEN
     Indication: Arthralgia
     Dosage: 650 MILLIGRAM, 3 TIMES A DAY (650 MG PRESCRIBED: 1-1-1-0; USED: 1-1-1-0)
     Route: 065
  21. AMISULPRIDE [Concomitant]
     Active Substance: AMISULPRIDE
     Indication: Personality disorder
     Dosage: 100 MILLIGRAM (0-0-0-0.5)(0.5 DOSAGE FORM)
     Route: 065
  22. AMISULPRIDE [Concomitant]
     Active Substance: AMISULPRIDE
     Dosage: 0.5 MILLIGRAM, ONCE A DAY ((0-0-0-0.5))
     Route: 065
  23. ATORVASTATIN [Concomitant]
     Active Substance: ATORVASTATIN
     Indication: Hypercholesterolaemia
     Dosage: 40 MILLIGRAM, ONCE A DAY (0-0-1-0)(1 DOSAGE FORM ONCE A DAY)
     Route: 065
     Dates: start: 2015
  24. EMPAGLIFLOZIN\METFORMIN HYDROCHLORIDE [Concomitant]
     Active Substance: EMPAGLIFLOZIN\METFORMIN HYDROCHLORIDE
     Indication: Diabetes mellitus
     Dosage: 1 DOSAGE FORM
     Route: 065
  25. EMPAGLIFLOZIN\METFORMIN HYDROCHLORIDE [Concomitant]
     Active Substance: EMPAGLIFLOZIN\METFORMIN HYDROCHLORIDE
     Indication: Hypertension
     Dosage: 5 MILLIGRAM, TWO TIMES A DAY (1000 MG/5 MG (AX1-0-1-0), TWO TIMES A DAY
     Route: 065
     Dates: start: 2010
  26. EMPAGLIFLOZIN\METFORMIN HYDROCHLORIDE [Concomitant]
     Active Substance: EMPAGLIFLOZIN\METFORMIN HYDROCHLORIDE
     Dosage: 2 DOSAGE FORM, DAILY (1-0-1-0)
     Route: 065
     Dates: start: 2010
  27. CLOPIDOGREL [Concomitant]
     Active Substance: CLOPIDOGREL BISULFATE
     Indication: Cerebrovascular accident
     Dosage: 75 MILLIGRAM, ONCE A DAY (0-1-0-0)(1 DOSAGE FORM ONCE A DAY)
     Route: 065
     Dates: start: 2018
  28. CLOPIDOGREL [Concomitant]
     Active Substance: CLOPIDOGREL BISULFATE
     Indication: Cerebrovascular accident prophylaxis
  29. CALCIFEDIOL [Concomitant]
     Active Substance: CALCIFEDIOL
     Indication: Vitamin D deficiency
     Dosage: 0.266 MILLIGRAM (1 UD /MONTH)(1 DOSAGE FORM FOR A MONTH)
     Route: 065
  30. CALCIFEDIOL [Concomitant]
     Active Substance: CALCIFEDIOL
     Dosage: 1 DOSAGE FORM 1 MONTH
     Route: 065
     Dates: start: 2021
  31. GLYCOPYRRONIUM\INDACATEROL [Concomitant]
     Active Substance: GLYCOPYRRONIUM\INDACATEROL
     Indication: Chronic obstructive pulmonary disease
     Dosage: 43 MICROGRAM, ONCE A DAY (85 ?G/43 ?G (1 UD/24H))
     Route: 065
     Dates: start: 2016
  32. LIRAGLUTIDE [Concomitant]
     Active Substance: LIRAGLUTIDE
     Indication: Diabetes mellitus
     Dosage: 6 MILLIGRAM/MILLILITRE (1UD/7DAYS)(1 DOSAGE FORM)
     Route: 065
  33. LIRAGLUTIDE [Concomitant]
     Active Substance: LIRAGLUTIDE
     Indication: Hypertension
     Dosage: 1 DOSAGE FORM, EVERY WEEK
     Dates: start: 2010
  34. PANTOPRAZOLE [Concomitant]
     Active Substance: PANTOPRAZOLE
     Indication: Gastrooesophageal reflux disease
     Dosage: 40 MILLIGRAM, ONCE A DAY (1-0-0-0)(1 DOSAGE FORM ONCE A DAY)
     Route: 065
     Dates: start: 2016
  35. ACETAMINOPHEN\TRAMADOL [Concomitant]
     Active Substance: ACETAMINOPHEN\TRAMADOL
     Indication: Arthralgia
     Dosage: 75 MG/650 MG (1-1-1-0), 3 TIMES A DAY
     Route: 065
     Dates: start: 2019
  36. ALBUTEROL [Concomitant]
     Active Substance: ALBUTEROL
     Indication: Chronic obstructive pulmonary disease
     Dosage: 100 MICROGRAM (00 MCG/IN. DOSAGE PRESCRIBED: ON-DEMAND; DOSAGE USED: ON-DEMAND)
     Route: 065
     Dates: start: 2016
  37. TRAMADOL [Concomitant]
     Active Substance: TRAMADOL\TRAMADOL HYDROCHLORIDE
     Indication: Arthralgia
     Dosage: 3 DOSAGE FORM, ONCE A DAY (100 MILLIGRAM/MILLILITRE AS NECESSARY)
     Route: 065
     Dates: start: 2019
  38. TRAMADOL [Concomitant]
     Active Substance: TRAMADOL\TRAMADOL HYDROCHLORIDE
     Dosage: 75 MILLIGRAM
     Route: 065
     Dates: start: 2019
  39. VORTIOXETINE [Concomitant]
     Active Substance: VORTIOXETINE
     Indication: Personality disorder
     Dosage: 15 MILLIGRAM, ONCE A DAY (1-0-0-0)(1 DOSAGE FORM ONCE A DAY)
     Route: 065
  40. INDACATEROL [Concomitant]
     Active Substance: INDACATEROL
     Indication: Chronic obstructive pulmonary disease
     Dosage: 85 MICROGRAM, ONCE A DAY (AT A DOSAGE OF 1 EVERY 24 HOURS)
     Route: 065
     Dates: start: 2016
  41. INDACATEROL [Concomitant]
     Active Substance: INDACATEROL
     Dosage: 1 DOSAGE FORM, ONCE A DAY
     Route: 065
  42. MANIDIPINE HYDROCHLORIDE [Concomitant]
     Active Substance: MANIDIPINE HYDROCHLORIDE
     Indication: Hypertension
     Dosage: 10 MILLIGRAM (USED DOSAGE OF 0-0-2-0)
     Route: 065
     Dates: start: 2014
  43. VALSARTAN [Concomitant]
     Active Substance: VALSARTAN
     Indication: Hypertension
     Dosage: 320 MILLIGRAM (USED DOSAGE OF 1-0-0-0)
     Route: 065
     Dates: start: 2014

REACTIONS (8)
  - Hypotension [Recovered/Resolved]
  - Hallucination [Recovered/Resolved]
  - Parkinsonism [Recovered/Resolved]
  - Drug interaction [Recovered/Resolved]
  - Hypoglycaemia [Recovered/Resolved]
  - Somnolence [Recovered/Resolved]
  - Tachycardia [Recovered/Resolved]
  - Hyperhidrosis [Recovered/Resolved]
